FAERS Safety Report 8482166-X (Version None)
Quarter: 2012Q3

REPORT INFORMATION
  Report Type: 
  Country: None (occurrence: None)
  Receive Date: 20120702
  Receipt Date: 20120622
  Transmission Date: 20120928
  Serious: Yes (Other)
  Sender: FDA-Public Use
  Company Number: FR-VERTEX PHARMACEUTICALS INC.-AE-2011-000144

PATIENT
  Sex: Male
  Weight: 65 kg

DRUGS (9)
  1. VX-950 [Suspect]
     Indication: HEPATITIS C
     Route: 048
     Dates: start: 20110314, end: 20110607
  2. RIBAVIRIN [Concomitant]
     Route: 048
  3. CHONDROSULF [Concomitant]
     Indication: POLYARTHRITIS
     Route: 048
  4. PEGINTERFERON ALFA-2A [Concomitant]
     Indication: HEPATITIS C
     Route: 058
     Dates: start: 20110314, end: 20110614
  5. PEGINTERFERON ALFA-2A [Concomitant]
     Route: 058
     Dates: start: 20110621
  6. LEXOMIL [Concomitant]
     Indication: SLEEP DISORDER
  7. PARACETAMOL [Concomitant]
     Indication: PYREXIA
     Route: 048
     Dates: start: 20110314, end: 20120215
  8. RIBAVIRIN [Concomitant]
     Indication: HEPATITIS C
     Route: 048
     Dates: start: 20110314
  9. LEXOMIL [Concomitant]
     Indication: ANXIETY

REACTIONS (3)
  - ANAEMIA [None]
  - NEUTROPENIA [None]
  - THROMBOCYTOPENIA [None]
